FAERS Safety Report 10674158 (Version 1)
Quarter: 2014Q4

REPORT INFORMATION
  Report Type: Spontaneous
  Country: CN (occurrence: CN)
  Receive Date: 20141224
  Receipt Date: 20141224
  Transmission Date: 20150529
  Serious: Yes (Death)
  Sender: FDA-Public Use
  Company Number: CN-PFIZER INC-2014352772

PATIENT
  Age: 49 Year
  Sex: Female

DRUGS (1)
  1. XALKORI [Suspect]
     Active Substance: CRIZOTINIB
     Indication: LUNG NEOPLASM MALIGNANT
     Dosage: 2 CAPSULES PER DAY X 30 DAYS (250MG)

REACTIONS (1)
  - Death [Fatal]

NARRATIVE: CASE EVENT DATE: 20141103
